FAERS Safety Report 4612094-9 (Version None)
Quarter: 2005Q2

REPORT INFORMATION
  Report Type: 
  Country: None (occurrence: None)
  Receive Date: 20050308
  Receipt Date: 20041223
  Transmission Date: 20051028
  Serious: Yes (Other)
  Sender: FDA-Public Use
  Company Number: 2004UW26100

PATIENT
  Age: 62 Year
  Sex: Male

DRUGS (9)
  1. CRESTOR [Suspect]
     Indication: HYPERCHOLESTEROLAEMIA
     Dosage: 10 MG PO
     Route: 048
     Dates: start: 20040501, end: 20041101
  2. CRESTOR [Suspect]
     Indication: HYPERCHOLESTEROLAEMIA
     Dosage: 5 MG PO
     Route: 048
     Dates: start: 20041101, end: 20041222
  3. METFORMIN [Concomitant]
  4. GLYBURIDE [Concomitant]
  5. AVANDIA [Concomitant]
  6. HYDROCODONE BITARTRATE [Concomitant]
  7. KLOR-CON [Concomitant]
  8. FUROSEMIDE [Concomitant]
  9. LEVOXYL [Concomitant]

REACTIONS (2)
  - LABORATORY TEST ABNORMAL [None]
  - MYALGIA [None]
